FAERS Safety Report 8521014-6 (Version None)
Quarter: 2012Q3

REPORT INFORMATION
  Report Type: 
  Country: None (occurrence: None)
  Receive Date: 20120719
  Receipt Date: 20120712
  Transmission Date: 20120928
  Serious: Yes (Hospitalization, Other)
  Sender: FDA-Public Use
  Company Number: US-009507513-1202USA02449

PATIENT

DRUGS (12)
  1. FOSAMAX PLUS D [Suspect]
     Indication: OSTEOPOROSIS
     Dosage: 70 MG, QW
     Route: 048
     Dates: start: 20051119, end: 20060830
  2. FOSAMAX PLUS D [Suspect]
     Indication: OSTEOPENIA
     Dosage: 70MG/2800
     Route: 048
     Dates: start: 20070520, end: 20071014
  3. FOSAMAX PLUS D [Suspect]
     Dosage: 70MG/2800
     Route: 048
     Dates: start: 20080902, end: 20101115
  4. MK-9278 [Concomitant]
     Dosage: UNK UNK, QD
     Dates: start: 19850101
  5. SYNTHROID [Concomitant]
     Indication: HYPOTHYROIDISM
     Dosage: 0.1 MG, QD
     Dates: start: 19950401
  6. VITAMIN E [Concomitant]
     Dosage: 400 IU, UNK
     Dates: start: 19980101, end: 19990101
  7. HORMONES (UNSPECIFIED) [Concomitant]
     Dates: start: 19980201, end: 20101101
  8. FOSAMAX [Suspect]
     Indication: OSTEOPOROSIS
     Dosage: 10 MG, QD
     Route: 048
     Dates: start: 19991214, end: 20011101
  9. FOSAMAX [Suspect]
     Indication: OSTEOPENIA
     Dosage: 70 MG, QW
     Route: 048
     Dates: start: 20011201, end: 20051016
  10. FOSAMAX [Suspect]
     Dosage: 70 MG, QW
     Route: 048
     Dates: start: 20071019, end: 20080201
  11. CALCIUM (UNSPECIFIED) [Concomitant]
     Dosage: 500-1500
     Dates: start: 19850101
  12. VITAMIN D (UNSPECIFIED) [Concomitant]
     Dates: start: 19960101, end: 20110101

REACTIONS (35)
  - HYPERPARATHYROIDISM [None]
  - FALL [None]
  - MELANOCYTIC NAEVUS [None]
  - ACUTE STRESS DISORDER [None]
  - POLYP [None]
  - TRAUMATIC HAEMATOMA [None]
  - HYPERTHYROIDISM [None]
  - ACCIDENT AT WORK [None]
  - GASTRITIS [None]
  - ATRIAL FIBRILLATION [None]
  - HYPERCHOLESTEROLAEMIA [None]
  - MIGRAINE [None]
  - DRUG HYPERSENSITIVITY [None]
  - OESOPHAGITIS [None]
  - LIMB INJURY [None]
  - LIGAMENT SPRAIN [None]
  - TOOTH DISORDER [None]
  - VITILIGO [None]
  - VERTIGO [None]
  - FRACTURED SACRUM [None]
  - LOW TURNOVER OSTEOPATHY [None]
  - VITAMIN D DEFICIENCY [None]
  - ARTHRALGIA [None]
  - PAIN IN EXTREMITY [None]
  - BACK PAIN [None]
  - BLADDER IRRITATION [None]
  - HYDROMETRA [None]
  - KERATOSIS PILARIS [None]
  - ADVERSE EVENT [None]
  - TIBIA FRACTURE [None]
  - IRON DEFICIENCY ANAEMIA [None]
  - ATROPHIC VULVOVAGINITIS [None]
  - FEMUR FRACTURE [None]
  - SINUSITIS [None]
  - CONTUSION [None]
